FAERS Safety Report 6737935-0 (Version None)
Quarter: 2010Q2

REPORT INFORMATION
  Report Type: 
  Country: None (occurrence: None)
  Receive Date: 20100524
  Receipt Date: 20100510
  Transmission Date: 20101027
  Serious: Yes (Other)
  Sender: FDA-Public Use
  Company Number: PHHY2010IT29922

PATIENT
  Age: 66 Year
  Sex: Female

DRUGS (1)
  1. DICLOFENAC SODIUM [Suspect]
     Route: 030

REACTIONS (5)
  - DEBRIDEMENT [None]
  - EMBOLIA CUTIS MEDICAMENTOSA [None]
  - INJECTION SITE NECROSIS [None]
  - INJECTION SITE PAIN [None]
  - INJECTION SITE ULCER [None]
